FAERS Safety Report 14707202 (Version 9)
Quarter: 2019Q1

REPORT INFORMATION
  Report Type: Report from Study
  Country: None (occurrence: US)
  Receive Date: 20180403
  Receipt Date: 20190131
  Transmission Date: 20190417
  Serious: Yes (Hospitalization, Other)
  Sender: FDA-Public Use
  Company Number: US-ABBVIE-18K-163-2283726-00

PATIENT
  Age: 66 Year
  Sex: Female

DRUGS (3)
  1. HUMIRA [Suspect]
     Active Substance: ADALIMUMAB
     Indication: CROHN^S DISEASE
     Route: 058
     Dates: start: 2013
  2. HUMIRA [Suspect]
     Active Substance: ADALIMUMAB
     Route: 058
     Dates: start: 201803
  3. PENTASA [Concomitant]
     Active Substance: MESALAMINE
     Indication: CROHN^S DISEASE

REACTIONS (17)
  - Pain [Recovering/Resolving]
  - Intestinal obstruction [Not Recovered/Not Resolved]
  - Anaemia [Unknown]
  - Intestinal ulcer [Not Recovered/Not Resolved]
  - Constipation [Recovered/Resolved]
  - Gastrointestinal inflammation [Not Recovered/Not Resolved]
  - Uterine polyp [Recovered/Resolved]
  - Anal incontinence [Unknown]
  - Food intolerance [Unknown]
  - Gastroenteritis viral [Unknown]
  - Gastrointestinal motility disorder [Unknown]
  - Tendonitis [Recovered/Resolved]
  - Nausea [Unknown]
  - Cough [Recovering/Resolving]
  - Biopsy intestine abnormal [Not Recovered/Not Resolved]
  - Intestinal stenosis [Not Recovered/Not Resolved]
  - Crohn^s disease [Not Recovered/Not Resolved]

NARRATIVE: CASE EVENT DATE: 201707
